FAERS Safety Report 7896637-8 (Version None)
Quarter: 2011Q4

REPORT INFORMATION
  Report Type: 
  Country: None (occurrence: None)
  Receive Date: 20111104
  Receipt Date: 20111104
  Transmission Date: 20120403
  Serious: Yes (Other)
  Sender: FDA-Public Use
  Company Number: None

PATIENT
  Age: 64 Year
  Sex: Female
  Weight: 67.1324 kg

DRUGS (1)
  1. CYMBALTA [Suspect]
     Indication: RENAL DISORDER
     Dosage: 60 MG 1 A DAY

REACTIONS (3)
  - SKIN EXFOLIATION [None]
  - HYPERHIDROSIS [None]
  - ERYTHEMA [None]
